APPROVED DRUG PRODUCT: AMLODIPINE BESYLATE
Active Ingredient: AMLODIPINE BESYLATE
Strength: EQ 5MG BASE 
Dosage Form/Route: TABLET;ORAL
Application: A203245 | Product #002 | TE Code: AB
Applicant: UNICHEM LABORATORIES LTD
Approved: Oct 21, 2013 | RLD: No | RS: No | Type: RX